FAERS Safety Report 10382632 (Version 1)
Quarter: 2014Q3

REPORT INFORMATION
  Report Type: Spontaneous
  Country: US (occurrence: US)
  Receive Date: 20140813
  Receipt Date: 20140813
  Transmission Date: 20150326
  Serious: No
  Sender: FDA-Public Use
  Company Number: US-SA-2014SA012716

PATIENT
  Age: 79 Year
  Sex: Female

DRUGS (4)
  1. WARFARIN [Concomitant]
     Active Substance: WARFARIN
     Indication: THROMBOSIS PROPHYLAXIS
     Dosage: VARIABLE BASED ON INR
  2. MULTAQ [Suspect]
     Active Substance: DRONEDARONE
     Indication: ATRIAL FIBRILLATION
     Route: 048
     Dates: start: 2010, end: 20140115
  3. FUROSEMIDE. [Concomitant]
     Active Substance: FUROSEMIDE
  4. ALBUTEROL SULFATE. [Concomitant]
     Active Substance: ALBUTEROL SULFATE
     Indication: ASTHMA

REACTIONS (8)
  - Eye pain [Recovered/Resolved]
  - Photophobia [Not Recovered/Not Resolved]
  - Dry eye [Unknown]
  - Somnolence [Unknown]
  - Urine output decreased [Unknown]
  - Increased viscosity of bronchial secretion [Unknown]
  - Fatigue [Unknown]
  - Visual acuity reduced [Not Recovered/Not Resolved]
